FAERS Safety Report 19188303 (Version 1)
Quarter: 2021Q2

REPORT INFORMATION
  Report Type: Spontaneous
  Country: CA (occurrence: CA)
  Receive Date: 20210427
  Receipt Date: 20210427
  Transmission Date: 20210717
  Serious: Yes (Other)
  Sender: FDA-Public Use
  Company Number: CA-JNJFOC-20210446328

PATIENT
  Age: 66 Year
  Sex: Male
  Weight: 67 kg

DRUGS (2)
  1. INFLIXIMAB, RECOMBINANT [Suspect]
     Active Substance: INFLIXIMAB
     Indication: COLITIS ULCERATIVE
     Route: 042
  2. INFLIXIMAB, RECOMBINANT [Suspect]
     Active Substance: INFLIXIMAB
     Indication: CROHN^S DISEASE
     Route: 042

REACTIONS (10)
  - Dysphagia [Unknown]
  - Tooth infection [Unknown]
  - Off label use [Unknown]
  - Varices oesophageal [Unknown]
  - Intentional product use issue [Unknown]
  - Product use issue [Unknown]
  - Psoriasis [Not Recovered/Not Resolved]
  - Urinary tract infection [Unknown]
  - Erythema nodosum [Not Recovered/Not Resolved]
  - Drug level below therapeutic [Unknown]
